FAERS Safety Report 10369211 (Version 1)
Quarter: 2014Q1

REPORT INFORMATION
  Report Type: Spontaneous
  Country: US (occurrence: None)
  Receive Date: 20140306
  Receipt Date: 20140306
  Transmission Date: 20141002
  Serious: Yes (Other)
  Sender: FDA-Public Use
  Company Number: 163-21880-13022188

PATIENT
  Age: 85 Year
  Sex: Female
  Weight: 48.99 kg

DRUGS (5)
  1. REVLIMID [Suspect]
     Indication: PLASMA CELL MYELOMA
     Dosage: 10 MG, 28 IN 28 D, PO
     Route: 048
     Dates: start: 20121017, end: 201301
  2. HYDRALAZINE (UNKNOWN) [Concomitant]
  3. LOPRESSOR (METOPROLOL TARTRATE) (UNKNOWN) [Concomitant]
  4. NORVASC (AMLODIPINE BESILATE) (UNKNOWN) [Concomitant]
  5. VELCADE (BORTEZOMIB) (INJECTION) [Concomitant]

REACTIONS (3)
  - Gastrointestinal haemorrhage [None]
  - Pancytopenia [None]
  - Platelet count decreased [None]
